FAERS Safety Report 16025317 (Version 5)
Quarter: 2019Q4

REPORT INFORMATION
  Report Type: Spontaneous
  Country: US (occurrence: US)
  Receive Date: 20190301
  Receipt Date: 20191014
  Transmission Date: 20200122
  Serious: Yes (Other)
  Sender: FDA-Public Use
  Company Number: US-ASTRAZENECA-2018SF48304

PATIENT
  Age: 27810 Day
  Sex: Female
  Weight: 108 kg

DRUGS (46)
  1. PRILOSEC [Suspect]
     Active Substance: OMEPRAZOLE MAGNESIUM
     Indication: GASTROOESOPHAGEAL REFLUX DISEASE
     Dosage: GENERIC
     Route: 065
     Dates: start: 20130523, end: 20181029
  2. PREVACID [Suspect]
     Active Substance: LANSOPRAZOLE
     Route: 065
  3. PREVACID 24 HR [Suspect]
     Active Substance: LANSOPRAZOLE
     Route: 065
  4. TIZANIDINE. [Concomitant]
     Active Substance: TIZANIDINE
  5. LORAZEPAM. [Concomitant]
     Active Substance: LORAZEPAM
     Indication: SEIZURE
     Dates: start: 20160810
  6. NITROGLYCERIN. [Concomitant]
     Active Substance: NITROGLYCERIN
  7. PRILOSEC [Suspect]
     Active Substance: OMEPRAZOLE MAGNESIUM
     Indication: GASTROOESOPHAGEAL REFLUX DISEASE
     Route: 048
     Dates: start: 201302, end: 201810
  8. PRILOSEC [Suspect]
     Active Substance: OMEPRAZOLE MAGNESIUM
     Indication: GASTROOESOPHAGEAL REFLUX DISEASE
     Route: 048
  9. METFORMIN [Concomitant]
     Active Substance: METFORMIN HYDROCHLORIDE
     Indication: TYPE 2 DIABETES MELLITUS
     Dates: start: 20161220
  10. AMLODIPINE [Concomitant]
     Active Substance: AMLODIPINE BESYLATE
     Indication: HYPERTENSION
     Dates: start: 20161102
  11. AZITHROMYCIN ANHYDROUS. [Concomitant]
     Active Substance: AZITHROMYCIN ANHYDROUS
  12. KLOR-CON [Concomitant]
     Active Substance: POTASSIUM CHLORIDE
  13. ATORVASTATIN [Concomitant]
     Active Substance: ATORVASTATIN
  14. CLOBETASOL [Concomitant]
     Active Substance: CLOBETASOL
  15. NEXIUM [Suspect]
     Active Substance: ESOMEPRAZOLE MAGNESIUM
     Route: 048
  16. NEXIUM 24HR [Suspect]
     Active Substance: ESOMEPRAZOLE MAGNESIUM
     Route: 048
  17. PRILOSEC OTC [Suspect]
     Active Substance: OMEPRAZOLE MAGNESIUM
     Route: 048
     Dates: start: 20030620, end: 20190801
  18. HYDROMORPHONE [Concomitant]
     Active Substance: HYDROMORPHONE
  19. HYDROC/APAP [Concomitant]
  20. PRILOSEC OTC [Suspect]
     Active Substance: OMEPRAZOLE MAGNESIUM
     Route: 048
  21. BENICAR HCT [Concomitant]
     Active Substance: HYDROCHLOROTHIAZIDE\OLMESARTAN MEDOXOMIL
  22. TRADJENTA [Concomitant]
     Active Substance: LINAGLIPTIN
  23. FUROSEMIDE. [Concomitant]
     Active Substance: FUROSEMIDE
     Indication: RENAL DISORDER
     Dates: start: 20160901
  24. FLUOXETINE [Concomitant]
     Active Substance: FLUOXETINE HYDROCHLORIDE
  25. ZANTAC [Concomitant]
     Active Substance: RANITIDINE HYDROCHLORIDE
  26. PRILOSEC [Suspect]
     Active Substance: OMEPRAZOLE MAGNESIUM
     Indication: GASTROOESOPHAGEAL REFLUX DISEASE
     Route: 048
     Dates: start: 19930101, end: 20181029
  27. PROTONIX [Suspect]
     Active Substance: PANTOPRAZOLE SODIUM
     Route: 065
     Dates: start: 201302, end: 201810
  28. STELARA [Concomitant]
     Active Substance: USTEKINUMAB
  29. GLIPIZIDE. [Concomitant]
     Active Substance: GLIPIZIDE
  30. NORVASC [Concomitant]
     Active Substance: AMLODIPINE BESYLATE
  31. VITAMIN B12 [Concomitant]
     Active Substance: CYANOCOBALAMIN
  32. VITAMIN D3 [Concomitant]
     Active Substance: CHOLECALCIFEROL
  33. ASPIRIN. [Concomitant]
     Active Substance: ASPIRIN
  34. PEPTO-BISMOL [Concomitant]
     Active Substance: BISMUTH SUBSALICYLATE
  35. AMLODIPINE [Concomitant]
     Active Substance: AMLODIPINE BESYLATE
  36. PRILOSEC [Suspect]
     Active Substance: OMEPRAZOLE MAGNESIUM
     Indication: GASTROOESOPHAGEAL REFLUX DISEASE
     Route: 048
     Dates: start: 20130204, end: 20131029
  37. FLUOXETIN [Concomitant]
     Active Substance: FLUOXETINE HYDROCHLORIDE
  38. CLOBETASOL [Concomitant]
     Active Substance: CLOBETASOL
  39. LIDOCAINE. [Concomitant]
     Active Substance: LIDOCAINE
  40. LEVOTHYROXIN [Concomitant]
     Active Substance: LEVOTHYROXINE
  41. OXYCODONE [Concomitant]
     Active Substance: OXYCODONE
  42. OLMESARTAN [Concomitant]
     Active Substance: OLMESARTAN
  43. PRILOSEC [Suspect]
     Active Substance: OMEPRAZOLE MAGNESIUM
     Indication: GASTROOESOPHAGEAL REFLUX DISEASE
     Dosage: GENERIC
     Route: 065
     Dates: start: 20161121
  44. PRILOSEC [Suspect]
     Active Substance: OMEPRAZOLE MAGNESIUM
     Indication: GASTROOESOPHAGEAL REFLUX DISEASE
     Route: 048
  45. PRILOSEC OTC [Suspect]
     Active Substance: OMEPRAZOLE MAGNESIUM
     Route: 048
     Dates: start: 201302, end: 201810
  46. BENICAR [Concomitant]
     Active Substance: OLMESARTAN MEDOXOMIL

REACTIONS (2)
  - Chronic kidney disease [Not Recovered/Not Resolved]
  - Renal injury [Unknown]

NARRATIVE: CASE EVENT DATE: 20180417
